FAERS Safety Report 9042887 (Version 1)
Quarter: 2013Q1

REPORT INFORMATION
  Report Type: Report from Study
  Country: US (occurrence: US)
  Receive Date: 20130129
  Receipt Date: 20130129
  Transmission Date: 20140127
  Serious: No
  Sender: FDA-Public Use
  Company Number: US-ABBOTT-12P-163-0910050-00

PATIENT
  Age: 72 None
  Sex: Female

DRUGS (1)
  1. HUMIRA 40 MG/0.8 ML PEN [Suspect]
     Indication: RHEUMATOID ARTHRITIS
     Dates: start: 201111

REACTIONS (8)
  - Bronchitis [Unknown]
  - Asthma [Unknown]
  - Wheezing [Unknown]
  - Cough [Unknown]
  - Fall [Unknown]
  - Head injury [Unknown]
  - Headache [Unknown]
  - Contusion [Unknown]
